FAERS Safety Report 16095848 (Version 1)
Quarter: 2019Q1

REPORT INFORMATION
  Report Type: Spontaneous
  Country: US (occurrence: US)
  Receive Date: 20190320
  Receipt Date: 20190320
  Transmission Date: 20190418
  Serious: No
  Sender: FDA-Public Use
  Company Number: US-TEVA-2018-US-905563

PATIENT
  Age: 51 Year
  Sex: Female

DRUGS (11)
  1. TYLENOL [Concomitant]
     Active Substance: ACETAMINOPHEN
     Indication: HEADACHE
     Route: 065
  2. MANNITOL. [Concomitant]
     Active Substance: MANNITOL
     Indication: BLOOD BRAIN BARRIER DEFECT
     Dosage: INFUSED IN THE A2 SEGMENT OF THE RIGHT ANTERIOR CEREBRAL ARTERY (ACA) OVER 2 MINUTES
     Route: 013
  3. DEXAMETHASONE. [Suspect]
     Active Substance: DEXAMETHASONE
     Indication: HEADACHE
     Route: 048
  4. CETUXIMAB. [Suspect]
     Active Substance: CETUXIMAB
     Indication: GLIOBLASTOMA
     Dosage: SUPERSELECTIVE INTRAARTERIAL CEREBRAL INFUSION OF 120ML CETUXIMAB INFUSED AT A RATE OF 2-3ML/MINUTE
     Route: 013
  5. LUPRON [Suspect]
     Active Substance: LEUPROLIDE ACETATE
     Indication: VAGINAL HAEMORRHAGE
     Route: 065
  6. MANNITOL. [Concomitant]
     Active Substance: MANNITOL
     Dosage: INFUSED INTO THE LEFT ANTERIOR CEREBRAL ARTERY (ACA) AVER 2 MINUTES
     Route: 013
  7. DEXAMETHASONE. [Suspect]
     Active Substance: DEXAMETHASONE
     Indication: HEADACHE
     Route: 048
  8. TEMOZOLOMIDE. [Suspect]
     Active Substance: TEMOZOLOMIDE
     Indication: GLIOBLASTOMA
     Dosage: MAINTENANCE TEMOZOLOMIDE 300MG/DAY FOR 5 DAYS
     Route: 065
  9. CETUXIMAB. [Suspect]
     Active Substance: CETUXIMAB
     Indication: GLIOBLASTOMA
     Dosage: SUPERSELECTIVE INTRAARTERIAL CEREBRAL INFUSION OF 71ML CETUXIMAB
     Route: 013
  10. TEMOZOLOMIDE. [Suspect]
     Active Substance: TEMOZOLOMIDE
     Indication: GLIOBLASTOMA
     Dosage: STANDARD CHEMOTHERAPY AS PER STUPP PROTOCOL
     Route: 048
  11. TEMOZOLOMIDE. [Suspect]
     Active Substance: TEMOZOLOMIDE
     Indication: GLIOBLASTOMA
     Dosage: MAINTENANCE TEMOZOLOMIDE
     Route: 065

REACTIONS (4)
  - Mania [Unknown]
  - Pruritus generalised [Unknown]
  - Nausea [Recovered/Resolved]
  - Acne [Unknown]
